FAERS Safety Report 21911421 (Version 1)
Quarter: 2023Q1

REPORT INFORMATION
  Report Type: Spontaneous
  Country: US (occurrence: US)
  Receive Date: 20230125
  Receipt Date: 20230125
  Transmission Date: 20230418
  Serious: No
  Sender: FDA-Public Use
  Company Number: US-ALLERGAN-2219493US

PATIENT
  Sex: Female

DRUGS (1)
  1. BOTOX COSMETIC [Suspect]
     Active Substance: ONABOTULINUMTOXINA
     Indication: Skin wrinkling
     Dosage: 20 UNITS, SINGLE

REACTIONS (5)
  - Paranasal sinus discomfort [Not Recovered/Not Resolved]
  - Sneezing [Unknown]
  - Ocular discomfort [Unknown]
  - Rhinorrhoea [Unknown]
  - Erythema [Unknown]
